FAERS Safety Report 5307866-1 (Version None)
Quarter: 2007Q2

REPORT INFORMATION
  Report Type: 
  Country: None (occurrence: None)
  Receive Date: 20070420
  Receipt Date: 20070412
  Transmission Date: 20071010
  Serious: Yes (Other)
  Sender: FDA-Public Use
  Company Number: 2007EN000084

PATIENT
  Age: 39 Year
  Sex: Female
  Weight: 68.0396 kg

DRUGS (8)
  1. OPANA ER [Suspect]
     Indication: DRUG USE FOR UNKNOWN INDICATION
     Dosage: 5 MG; QD
     Dates: start: 20070109, end: 20070101
  2. OPANA [Suspect]
     Indication: DRUG USE FOR UNKNOWN INDICATION
     Dosage: 5 MG; PRN
     Dates: start: 20070109, end: 20070101
  3. DURAGESIC /00174601/ [Concomitant]
  4. NORCO [Concomitant]
  5. VALIUM [Concomitant]
  6. SOMA [Concomitant]
  7. PROVIGIL [Concomitant]
  8. SENOKOT [Concomitant]

REACTIONS (3)
  - AMNESIA [None]
  - COGNITIVE DISORDER [None]
  - CONFUSIONAL STATE [None]
